FAERS Safety Report 10404447 (Version 2)
Quarter: 2014Q4

REPORT INFORMATION
  Report Type: Spontaneous
  Country: US (occurrence: US)
  Receive Date: 20140823
  Receipt Date: 20141001
  Transmission Date: 20150528
  Serious: No
  Sender: FDA-Public Use
  Company Number: US-009507513-1408USA011988

PATIENT
  Age: 72 Year
  Sex: Female
  Weight: 63.39 kg

DRUGS (11)
  1. ALEVE [Concomitant]
     Active Substance: NAPROXEN SODIUM
     Indication: PRODUCT USED FOR UNKNOWN INDICATION
     Dosage: UNK, UNKNOWN
  2. ZINC (UNSPECIFIED) [Concomitant]
     Indication: PRODUCT USED FOR UNKNOWN INDICATION
     Dosage: UNK, UNKNOWN
  3. CLARITIN REDITABS [Suspect]
     Active Substance: LORATADINE
     Indication: HOUSE DUST ALLERGY
  4. VENTOLIN [Concomitant]
     Active Substance: ALBUTEROL SULFATE
     Indication: LUNG DISORDER
  5. CLARITIN REDITABS [Suspect]
     Active Substance: LORATADINE
     Indication: HYPERSENSITIVITY
     Dosage: 5 MG, UNKNOWN
     Route: 048
     Dates: start: 2012, end: 201408
  6. CLARITIN REDITABS [Suspect]
     Active Substance: LORATADINE
     Indication: SEASONAL ALLERGY
  7. VENTOLIN [Concomitant]
     Active Substance: ALBUTEROL SULFATE
     Indication: ASTHMA
     Dosage: UNK, UNKNOWN
  8. CALCIUM (UNSPECIFIED) [Concomitant]
     Active Substance: CALCIUM
     Indication: PRODUCT USED FOR UNKNOWN INDICATION
     Dosage: UNK, UNKNOWN
  9. CLARITIN REDITABS [Suspect]
     Active Substance: LORATADINE
     Indication: MYCOTIC ALLERGY
  10. XYZAL [Concomitant]
     Active Substance: LEVOCETIRIZINE DIHYDROCHLORIDE
     Indication: LUNG DISORDER
  11. XYZAL [Concomitant]
     Active Substance: LEVOCETIRIZINE DIHYDROCHLORIDE
     Indication: ASTHMA
     Dosage: UNK, UNKNOWN

REACTIONS (4)
  - Anxiety [Recovered/Resolved]
  - Feeling abnormal [Recovered/Resolved]
  - Hyperhidrosis [Recovered/Resolved]
  - Dizziness [Recovered/Resolved]

NARRATIVE: CASE EVENT DATE: 201408
